FAERS Safety Report 5793124-8 (Version None)
Quarter: 2008Q2

REPORT INFORMATION
  Report Type: 
  Country: None (occurrence: None)
  Receive Date: 20080627
  Receipt Date: 20080306
  Transmission Date: 20081010
  Serious: No
  Sender: FDA-Public Use
  Company Number: A0713827A

PATIENT
  Age: 68 Year
  Sex: Male

DRUGS (6)
  1. FLOVENT [Suspect]
     Indication: ASTHMA
     Dosage: 1PUFF TWICE PER DAY
     Route: 055
     Dates: start: 20080116
  2. VERAMYST [Suspect]
     Dosage: 2SPR PER DAY
     Route: 045
     Dates: start: 20080116
  3. COREG [Concomitant]
  4. ATACAND [Concomitant]
  5. NORVASC [Concomitant]
  6. ALBUTEROL [Concomitant]

REACTIONS (1)
  - ANOSMIA [None]
